FAERS Safety Report 23614761 (Version 1)
Quarter: 2024Q1

REPORT INFORMATION
  Report Type: Spontaneous
  Country: CH (occurrence: CH)
  Receive Date: 20240311
  Receipt Date: 20240311
  Transmission Date: 20240410
  Serious: Yes (Hospitalization, Other)
  Sender: FDA-Public Use
  Company Number: CH-ABBVIE-5669303

PATIENT
  Sex: Male

DRUGS (1)
  1. LEUPROLIDE ACETATE [Suspect]
     Active Substance: ISOPROPYL ALCOHOL\LEUPROLIDE ACETATE
     Indication: Prostate cancer
     Dosage: UNKNOWN
     Route: 065

REACTIONS (6)
  - Renal transplant [Unknown]
  - Lymphoma [Recovered/Resolved]
  - Immunosuppression [Not Recovered/Not Resolved]
  - Cerebrovascular accident [Unknown]
  - Cancer fatigue [Not Recovered/Not Resolved]
  - Adverse drug reaction [Unknown]
